FAERS Safety Report 23943572 (Version 1)
Quarter: 2024Q2

REPORT INFORMATION
  Report Type: Spontaneous
  Country: JP (occurrence: JP)
  Receive Date: 20240606
  Receipt Date: 20240606
  Transmission Date: 20240715
  Serious: Yes (Hospitalization)
  Sender: FDA-Public Use
  Company Number: JP-TAKEDA-2024TJP006559

PATIENT
  Age: 6 Year
  Sex: Male

DRUGS (1)
  1. MIDAZOLAM HYDROCHLORIDE [Suspect]
     Active Substance: MIDAZOLAM HYDROCHLORIDE
     Indication: Status epilepticus
     Dosage: 7.5 MILLIGRAM
     Route: 050
     Dates: start: 202405

REACTIONS (3)
  - Hospitalisation [Unknown]
  - Vomiting [Unknown]
  - Therapeutic product effect incomplete [Unknown]
